FAERS Safety Report 4471646-X (Version None)
Quarter: 2004Q4

REPORT INFORMATION
  Report Type: 
  Country: None (occurrence: None)
  Receive Date: 20041012
  Receipt Date: 20040915
  Transmission Date: 20050328
  Serious: Yes (Hospitalization, Other)
  Sender: FDA-Public Use
  Company Number: 200419091GDDC

PATIENT
  Age: 67 Year
  Sex: Male
  Weight: 60 kg

DRUGS (10)
  1. CODE UNBROKEN [Suspect]
     Indication: MYOCARDIAL INFARCTION
     Dosage: DOSE: ENOXAPARIN BOLUS 30 MG
     Route: 040
  2. ASPIRIN [Suspect]
     Indication: MYOCARDIAL INFARCTION
     Route: 048
     Dates: start: 20040723, end: 20040826
  3. RETEPLASE [Suspect]
     Indication: MYOCARDIAL INFARCTION
     Route: 042
     Dates: start: 20040723, end: 20040723
  4. ISODINIT [Concomitant]
     Route: 048
     Dates: start: 20040723
  5. METOPROLOL [Concomitant]
     Route: 048
     Dates: start: 20040723
  6. RENAPRIL [Concomitant]
     Indication: HYPERTENSION
     Route: 048
     Dates: start: 20040723
  7. CHLOPHAZOLIN [Concomitant]
     Indication: HYPERTENSION
     Route: 048
     Dates: start: 20040725
  8. ATORVASTATIN CALCIUM [Concomitant]
     Route: 048
     Dates: start: 20040801
  9. AMIODARONE [Concomitant]
     Indication: EXTRASYSTOLES
     Route: 048
     Dates: start: 20040731
  10. QUAMATEL [Concomitant]
     Indication: HYPERCHLORHYDRIA

REACTIONS (7)
  - ACTIVATED PARTIAL THROMBOPLASTIN TIME SHORTENED [None]
  - AMAUROSIS [None]
  - BLINDNESS [None]
  - EYE HAEMORRHAGE [None]
  - EYE PAIN [None]
  - GLAUCOMA [None]
  - VISUAL ACUITY REDUCED [None]
